FAERS Safety Report 9189398 (Version 1)
Quarter: 2013Q1

REPORT INFORMATION
  Report Type: Spontaneous
  Country: NO (occurrence: NO)
  Receive Date: 20130326
  Receipt Date: 20130326
  Transmission Date: 20140127
  Serious: Yes (Hospitalization, Other)
  Sender: FDA-Public Use
  Company Number: PHHY2013NO027127

PATIENT
  Age: 45 Year
  Sex: Female

DRUGS (7)
  1. SOBRIL [Concomitant]
  2. LEPONEX [Suspect]
  3. XEPLION [Suspect]
     Indication: SCHIZOPHRENIA
     Dosage: 150 MG, UNK
  4. XEPLION [Suspect]
     Dosage: 100 MG, UNK
  5. XEPLION [Suspect]
     Dosage: 75 MG, UNK
     Dates: start: 20120305
  6. PALIPERIDONE [Suspect]
     Route: 048
     Dates: start: 201202
  7. SEROQUEL [Concomitant]

REACTIONS (5)
  - Anxiety [Not Recovered/Not Resolved]
  - Delusion [Not Recovered/Not Resolved]
  - Restlessness [Recovered/Resolved]
  - Tardive dyskinesia [Unknown]
  - Musculoskeletal stiffness [Recovered/Resolved]
